FAERS Safety Report 5480637-1 (Version None)
Quarter: 2007Q4

REPORT INFORMATION
  Report Type: 
  Country: None (occurrence: None)
  Receive Date: 20071004
  Receipt Date: 20071004
  Transmission Date: 20080405
  Serious: Yes (Hospitalization)
  Sender: FDA-Public Use
  Company Number: None

PATIENT
  Sex: Female
  Weight: 101 kg

DRUGS (2)
  1. G-CSF (FILGRASTIM, AMGEN) [Suspect]
     Dosage: 480 MCG
     Dates: end: 20070925
  2. MELPHALAN [Suspect]
     Dosage: 360 MG
     Dates: end: 20070910

REACTIONS (12)
  - ABDOMINAL DISTENSION [None]
  - ABDOMINAL PAIN [None]
  - DIARRHOEA [None]
  - DIVERTICULUM [None]
  - FLUID OVERLOAD [None]
  - INTESTINAL MASS [None]
  - INTESTINAL STENOSIS [None]
  - LARGE INTESTINAL OBSTRUCTION [None]
  - POST PROCEDURAL COMPLICATION [None]
  - RESPIRATORY FAILURE [None]
  - SEPSIS [None]
  - STEM CELL TRANSPLANT [None]
